FAERS Safety Report 15781177 (Version 4)
Quarter: 2019Q1

REPORT INFORMATION
  Report Type: Spontaneous
  Country: GB (occurrence: GB)
  Receive Date: 20190102
  Receipt Date: 20190220
  Transmission Date: 20190417
  Serious: Yes (Life-Threatening, Other)
  Sender: FDA-Public Use
  Company Number: GB-SA-2018SA394134

PATIENT
  Age: 75 Year
  Sex: Female

DRUGS (2)
  1. SELSUN [Suspect]
     Active Substance: SELENIUM SULFIDE
     Indication: SKIN DISORDER
  2. SELSUN [Suspect]
     Active Substance: SELENIUM SULFIDE

REACTIONS (14)
  - Immune system disorder [Unknown]
  - Eye swelling [Recovering/Resolving]
  - Lacrimation increased [Recovering/Resolving]
  - Swelling of eyelid [Recovering/Resolving]
  - Bronchitis [Unknown]
  - Eye infection [Unknown]
  - Eye disorder [Not Recovered/Not Resolved]
  - Vision blurred [Recovering/Resolving]
  - Accidental exposure to product [Unknown]
  - Injury corneal [Recovering/Resolving]
  - Eye pain [Recovering/Resolving]
  - Hypersensitivity [Unknown]
  - Chest pain [Unknown]
  - Blindness [Recovering/Resolving]

NARRATIVE: CASE EVENT DATE: 201812
